FAERS Safety Report 7977255-X (Version None)
Quarter: 2011Q4

REPORT INFORMATION
  Report Type: 
  Country: None (occurrence: None)
  Receive Date: 20111213
  Receipt Date: 20111116
  Transmission Date: 20120403
  Serious: Yes (Other)
  Sender: FDA-Public Use
  Company Number: US-AMGEN-USASP2011060381

PATIENT
  Sex: Female

DRUGS (1)
  1. ENBREL [Suspect]
     Indication: RHEUMATOID ARTHRITIS
     Dosage: 50 MG, QWK
     Dates: start: 20100524, end: 20111005

REACTIONS (4)
  - GASTROINTESTINAL PAIN [None]
  - DIVERTICULITIS [None]
  - BASAL CELL CARCINOMA [None]
  - ABDOMINAL PAIN [None]
